FAERS Safety Report 23428495 (Version 1)
Quarter: 2024Q1

REPORT INFORMATION
  Report Type: Spontaneous
  Country: US (occurrence: US)
  Receive Date: 20240122
  Receipt Date: 20240122
  Transmission Date: 20240410
  Serious: Yes (Other)
  Sender: FDA-Public Use
  Company Number: US-AMGEN-USASP2024009847

PATIENT
  Age: 79 Year
  Sex: Male

DRUGS (7)
  1. XGEVA [Suspect]
     Active Substance: DENOSUMAB
     Indication: Hormone-refractory prostate cancer
     Dosage: UNK
     Route: 065
     Dates: start: 201408
  2. KPG-121 [Suspect]
     Active Substance: KPG-121
     Indication: Hormone-refractory prostate cancer
     Dosage: 5 MILLIGRAM, CONTINUING FOR 10 DAYS
     Route: 065
  3. KPG-121 [Suspect]
     Active Substance: KPG-121
     Dosage: 2.5 MILLIGRAM
     Route: 065
     Dates: start: 20220425
  4. KPG-121 [Suspect]
     Active Substance: KPG-121
     Dosage: 0.5 MILLIGRAM
     Route: 065
     Dates: start: 20220808
  5. ENZALUTAMIDE [Suspect]
     Active Substance: ENZALUTAMIDE
     Indication: Hormone-refractory prostate cancer
     Dosage: UNK
     Route: 065
     Dates: start: 201910
  6. ENZALUTAMIDE [Suspect]
     Active Substance: ENZALUTAMIDE
     Dosage: 160 MILLIGRAM, QD
     Route: 065
     Dates: start: 20220126
  7. DEGARELIX [Concomitant]
     Active Substance: DEGARELIX
     Indication: Hormone-refractory prostate cancer
     Dosage: UNK
     Route: 065
     Dates: start: 201607

REACTIONS (3)
  - Neutropenia [Unknown]
  - Prostatic specific antigen increased [Recovered/Resolved]
  - Gene mutation [Unknown]

NARRATIVE: CASE EVENT DATE: 20211201
